FAERS Safety Report 6996497-3 (Version None)
Quarter: 2010Q3

REPORT INFORMATION
  Report Type: 
  Country: None (occurrence: None)
  Receive Date: 20100918
  Receipt Date: 20090313
  Transmission Date: 20110219
  Serious: No
  Sender: FDA-Public Use
  Company Number: US-WYE-H08369309

PATIENT
  Age: 35 Year
  Sex: Male

DRUGS (10)
  1. EFFEXOR XR [Suspect]
     Route: 048
     Dates: start: 20070104
  2. EFFEXOR XR [Interacting]
     Route: 048
     Dates: start: 20061001
  3. EFFEXOR XR [Interacting]
     Route: 048
     Dates: start: 20060701, end: 20061001
  4. EFFEXOR XR [Interacting]
     Route: 048
     Dates: start: 20060401, end: 20060701
  5. IBUPROFEN [Interacting]
  6. AMBIEN CR [Interacting]
     Dosage: UNKNOWN
     Route: 048
     Dates: start: 20070104
  7. ZOLOFT [Interacting]
     Dates: start: 20060401, end: 20060701
  8. ZOLOFT [Interacting]
     Dates: start: 20060701, end: 20061001
  9. ZOLOFT [Interacting]
     Dates: start: 20061001
  10. ALLEGRA D 24 HOUR [Interacting]
     Indication: HYPERSENSITIVITY
     Dosage: UNKNOWN
     Route: 048

REACTIONS (2)
  - AMNESIA [None]
  - DRUG INTERACTION [None]
